FAERS Safety Report 8984322 (Version 1)
Quarter: 2012Q4

REPORT INFORMATION
  Report Type: Spontaneous
  Country: IT (occurrence: None)
  Receive Date: 20121212
  Receipt Date: 20121212
  Transmission Date: 20130627
  Serious: Yes (Other)
  Sender: FDA-Public Use
  Company Number: CIP-2012-00439

PATIENT
  Age: 75 Year
  Sex: Female

DRUGS (1)
  1. LEVOFLOXACIN (LEVOFLOXACIN) [Suspect]
     Indication: HEMORRHAGIC CYSTITIS
     Dosage: 1000  mg  (500  mg,  2 in 1 D)
unknown  -  unknown

REACTIONS (4)
  - Purpura [None]
  - Pruritus [None]
  - Capillaritis [None]
  - Photosensitivity reaction [None]
